FAERS Safety Report 24364465 (Version 1)
Quarter: 2024Q3

REPORT INFORMATION
  Report Type: Spontaneous
  Country: CN (occurrence: CN)
  Receive Date: 20240926
  Receipt Date: 20240926
  Transmission Date: 20241016
  Serious: Yes (Other)
  Sender: ORGANON
  Company Number: CN-ORGANON-O2409CHN001854

PATIENT
  Age: 78 Year
  Sex: Male

DRUGS (6)
  1. DIPROSPAN [Suspect]
     Active Substance: BETAMETHASONE DIPROPIONATE\BETAMETHASONE SODIUM PHOSPHATE
     Indication: Intervertebral disc protrusion
     Dosage: 6 MG, QD, EPIDURAL USE
     Route: 008
     Dates: start: 20240910, end: 20240910
  2. DIPROSPAN [Suspect]
     Active Substance: BETAMETHASONE DIPROPIONATE\BETAMETHASONE SODIUM PHOSPHATE
     Indication: Sciatica
  3. LIDOCAINE HYDROCHLORIDE [Concomitant]
     Active Substance: LIDOCAINE HYDROCHLORIDE
     Indication: Intervertebral disc protrusion
     Dosage: 18 ML, QD, IV DRIP
     Route: 041
     Dates: start: 20240910, end: 20240910
  4. LIDOCAINE HYDROCHLORIDE [Concomitant]
     Active Substance: LIDOCAINE HYDROCHLORIDE
     Indication: Sciatica
  5. VITAMIN B12 [Concomitant]
     Active Substance: CYANOCOBALAMIN
     Indication: Intervertebral disc protrusion
     Dosage: 0.5 ML, QD, IV DRIP
     Route: 041
     Dates: start: 20240910, end: 20240910
  6. VITAMIN B12 [Concomitant]
     Active Substance: CYANOCOBALAMIN
     Indication: Sciatica

REACTIONS (4)
  - Anaphylactic shock [Not Recovered/Not Resolved]
  - Tic [Not Recovered/Not Resolved]
  - Blood pressure decreased [Not Recovered/Not Resolved]
  - Micturition urgency [Recovered/Resolved]

NARRATIVE: CASE EVENT DATE: 20240910
